FAERS Safety Report 16048439 (Version 5)
Quarter: 2020Q1

REPORT INFORMATION
  Report Type: Report from Study
  Country: JP (occurrence: JP)
  Receive Date: 20190307
  Receipt Date: 20200319
  Transmission Date: 20200409
  Serious: Yes (Hospitalization, Other)
  Sender: FDA-Public Use
  Company Number: JP-TAKEDA-2019TUS012145

PATIENT
  Age: 75 Year
  Sex: Male
  Weight: 60 kg

DRUGS (79)
  1. METHOTREXATE. [Suspect]
     Active Substance: METHOTREXATE
     Dosage: UNK
     Route: 024
     Dates: start: 20180607
  2. METHOTREXATE. [Suspect]
     Active Substance: METHOTREXATE
     Dosage: UNK
     Route: 024
     Dates: start: 20191225, end: 20191227
  3. CYTARABINE. [Suspect]
     Active Substance: CYTARABINE
     Indication: CENTRAL NERVOUS SYSTEM LEUKAEMIA
     Dosage: UNK
     Route: 024
     Dates: start: 20190624
  4. CYTARABINE. [Suspect]
     Active Substance: CYTARABINE
     Dosage: UNK
     Route: 024
     Dates: start: 20180621
  5. CYTARABINE. [Suspect]
     Active Substance: CYTARABINE
     Dosage: UNK
     Route: 024
     Dates: start: 20180802, end: 20180802
  6. PREDNISOLONE. [Suspect]
     Active Substance: PREDNISOLONE
     Indication: CENTRAL NERVOUS SYSTEM LEUKAEMIA
     Dosage: UNK
     Route: 024
     Dates: start: 20190624
  7. LUNESTA [Concomitant]
     Active Substance: ESZOPICLONE
     Indication: SOMATIC SYMPTOM DISORDER
  8. ANTEBATE [Concomitant]
     Active Substance: BETAMETHASONE DIPROPIONATE
     Indication: ECZEMA ASTEATOTIC
     Dosage: UNK
     Route: 065
  9. BILASTINE [Concomitant]
     Active Substance: BILASTINE
     Indication: ECZEMA ASTEATOTIC
     Dosage: UNK
     Route: 065
  10. PONATINIB [Suspect]
     Active Substance: PONATINIB
     Dosage: 45 MILLIGRAM, QD
     Route: 048
     Dates: start: 20180418, end: 20190702
  11. METHOTREXATE. [Suspect]
     Active Substance: METHOTREXATE
     Dosage: UNK
     Route: 024
     Dates: start: 20180802, end: 20180802
  12. METHOTREXATE. [Suspect]
     Active Substance: METHOTREXATE
     Dosage: UNK
     Route: 024
     Dates: start: 20191112
  13. METHOTREXATE. [Suspect]
     Active Substance: METHOTREXATE
     Dosage: UNK
     Route: 024
     Dates: start: 20191118
  14. CYTARABINE. [Suspect]
     Active Substance: CYTARABINE
     Dosage: UNK
     Route: 024
     Dates: start: 20190718
  15. PREDNISOLONE. [Suspect]
     Active Substance: PREDNISOLONE
     Dosage: UNK
     Route: 024
     Dates: start: 20180607
  16. PREDNISOLONE. [Suspect]
     Active Substance: PREDNISOLONE
     Dosage: UNK
     Route: 024
     Dates: start: 20180705
  17. PREDNISOLONE. [Suspect]
     Active Substance: PREDNISOLONE
     Dosage: UNK
     Route: 024
     Dates: start: 20191112
  18. BAYASPIRIN [Concomitant]
     Active Substance: ASPIRIN
     Dosage: UNK
     Route: 065
     Dates: start: 20190910
  19. TEGRETOL [Suspect]
     Active Substance: CARBAMAZEPINE
     Indication: HEADACHE
     Dosage: UNK
     Route: 065
  20. METHOTREXATE. [Suspect]
     Active Substance: METHOTREXATE
     Dosage: UNK
     Route: 024
     Dates: start: 20180524
  21. METHOTREXATE. [Suspect]
     Active Substance: METHOTREXATE
     Dosage: UNK
     Route: 024
     Dates: start: 20190618
  22. CYTARABINE. [Suspect]
     Active Substance: CYTARABINE
     Dosage: UNK
     Route: 024
     Dates: start: 20190622
  23. CYTARABINE. [Suspect]
     Active Substance: CYTARABINE
     Dosage: UNK
     Route: 024
     Dates: start: 20191112
  24. CYTARABINE. [Suspect]
     Active Substance: CYTARABINE
     Dosage: UNK
     Route: 024
     Dates: start: 20191118
  25. PREDNISOLONE. [Suspect]
     Active Substance: PREDNISOLONE
     Dosage: UNK
     Route: 024
     Dates: start: 20190618
  26. PREDNISOLONE. [Suspect]
     Active Substance: PREDNISOLONE
     Dosage: UNK
     Route: 024
     Dates: start: 20190718
  27. PREDNISOLONE. [Suspect]
     Active Substance: PREDNISOLONE
     Dosage: UNK
     Route: 024
     Dates: start: 20191126
  28. PREDNISOLONE. [Suspect]
     Active Substance: PREDNISOLONE
     Dosage: UNK
     Route: 024
     Dates: start: 20191203, end: 20191203
  29. LOXONIN [Concomitant]
     Active Substance: LOXOPROFEN SODIUM
     Indication: HEADACHE
     Dosage: UNK
     Route: 065
  30. QUETIAPINE                         /01270902/ [Concomitant]
     Active Substance: QUETIAPINE FUMARATE
     Indication: SOMATIC SYMPTOM DISORDER
     Dosage: UNK
     Route: 065
  31. CLAFORAN [Concomitant]
     Active Substance: CEFOTAXIME SODIUM
     Indication: PNEUMONIA PNEUMOCOCCAL
     Dosage: UNK
     Route: 065
  32. FILGRASTIM [Concomitant]
     Active Substance: FILGRASTIM
     Indication: NEUTROPHIL COUNT DECREASED
     Dosage: UNK
     Route: 065
  33. CEFEPIME HYDROCHLORIDE. [Concomitant]
     Active Substance: CEFEPIME HYDROCHLORIDE
     Indication: LISTERAEMIA
     Dosage: UNK
     Route: 065
  34. PONATINIB [Suspect]
     Active Substance: PONATINIB
     Dosage: 30 MILLIGRAM, QD
     Route: 048
     Dates: start: 20180404, end: 20180417
  35. CYTARABINE. [Suspect]
     Active Substance: CYTARABINE
     Dosage: UNK
     Route: 024
     Dates: start: 20180607
  36. PREDNISOLONE. [Suspect]
     Active Substance: PREDNISOLONE
     Dosage: UNK
     Route: 024
     Dates: start: 20180502
  37. HIRUDOID [Concomitant]
     Active Substance: GLYCOSAMINOGLYCANS
     Indication: ECZEMA ASTEATOTIC
     Dosage: UNK
     Route: 065
  38. HIRUDOID [Concomitant]
     Active Substance: GLYCOSAMINOGLYCANS
     Indication: ECZEMA ASTEATOTIC
     Dosage: UNK
     Route: 065
  39. LOPERAMIDE                         /00384302/ [Concomitant]
     Active Substance: LOPERAMIDE HYDROCHLORIDE
     Indication: LARGE INTESTINAL ULCER
     Dosage: UNK
     Route: 065
  40. PONATINIB [Suspect]
     Active Substance: PONATINIB
     Indication: CHRONIC MYELOID LEUKAEMIA
     Dosage: 45 MILLIGRAM, QD
     Route: 048
     Dates: start: 20180126, end: 20180314
  41. CONTOMIN                           /00011907/ [Suspect]
     Active Substance: CHLORPROMAZINE HIBENZATE
     Indication: PRODUCT USED FOR UNKNOWN INDICATION
     Dosage: UNK
     Route: 065
  42. METHOTREXATE. [Suspect]
     Active Substance: METHOTREXATE
     Dosage: UNK
     Route: 024
     Dates: start: 20190718, end: 20190718
  43. METHOTREXATE. [Suspect]
     Active Substance: METHOTREXATE
     Dosage: UNK
     Route: 024
     Dates: start: 20191126
  44. METHOTREXATE. [Suspect]
     Active Substance: METHOTREXATE
     Dosage: UNK
     Route: 024
     Dates: start: 20191203
  45. PREDNISOLONE. [Suspect]
     Active Substance: PREDNISOLONE
     Dosage: UNK
     Route: 024
     Dates: start: 20180621
  46. CELECOX [Concomitant]
     Active Substance: CELECOXIB
     Indication: SOMATIC SYMPTOM DISORDER
     Dosage: UNK
     Route: 065
  47. MEROPENEM                          /01250502/ [Concomitant]
     Active Substance: MEROPENEM
     Indication: LISTERAEMIA
     Dosage: UNK
     Route: 065
  48. LYRICA [Suspect]
     Active Substance: PREGABALIN
     Indication: HEADACHE
     Dosage: UNK
     Route: 065
  49. LYRICA [Suspect]
     Active Substance: PREGABALIN
     Indication: SOMATIC SYMPTOM DISORDER
     Dosage: UNK
     Route: 065
  50. METHOTREXATE. [Suspect]
     Active Substance: METHOTREXATE
     Dosage: UNK
     Route: 024
     Dates: start: 20180502
  51. METHOTREXATE. [Suspect]
     Active Substance: METHOTREXATE
     Dosage: UNK
     Route: 024
     Dates: start: 20180705
  52. METHOTREXATE. [Suspect]
     Active Substance: METHOTREXATE
     Dosage: UNK
     Route: 024
     Dates: start: 20180719
  53. CYTARABINE. [Suspect]
     Active Substance: CYTARABINE
     Dosage: UNK
     Route: 024
     Dates: start: 20180524
  54. CYTARABINE. [Suspect]
     Active Substance: CYTARABINE
     Dosage: UNK
     Route: 024
     Dates: start: 20180719
  55. CYTARABINE. [Suspect]
     Active Substance: CYTARABINE
     Dosage: UNK
     Route: 024
     Dates: start: 20191225, end: 20191227
  56. PREDNISOLONE. [Suspect]
     Active Substance: PREDNISOLONE
     Dosage: UNK
     Route: 024
     Dates: start: 20180509
  57. PREDNISOLONE. [Suspect]
     Active Substance: PREDNISOLONE
     Dosage: UNK
     Route: 024
     Dates: start: 20180719
  58. PREDNISOLONE. [Suspect]
     Active Substance: PREDNISOLONE
     Dosage: UNK
     Route: 024
     Dates: start: 20180802, end: 20180802
  59. LUNESTA [Concomitant]
     Active Substance: ESZOPICLONE
     Indication: SOMATIC SYMPTOM DISORDER
     Dosage: UNK
     Route: 065
  60. CELECOX [Concomitant]
     Active Substance: CELECOXIB
     Indication: SOMATIC SYMPTOM DISORDER
  61. AZUNOL                             /00317302/ [Concomitant]
     Indication: ECZEMA ASTEATOTIC
     Dosage: UNK
     Route: 065
  62. PONATINIB [Suspect]
     Active Substance: PONATINIB
     Dosage: 15 MILLIGRAM, QD
     Route: 048
     Dates: start: 20180320, end: 20180403
  63. PONATINIB [Suspect]
     Active Substance: PONATINIB
     Dosage: 45 MILLIGRAM, QD
     Route: 048
     Dates: start: 20190910, end: 20200127
  64. METHOTREXATE. [Suspect]
     Active Substance: METHOTREXATE
     Indication: CENTRAL NERVOUS SYSTEM LEUKAEMIA
     Dosage: UNK
     Route: 024
     Dates: start: 20190624
  65. METHOTREXATE. [Suspect]
     Active Substance: METHOTREXATE
     Dosage: UNK
     Route: 024
     Dates: start: 20180509
  66. CYTARABINE. [Suspect]
     Active Substance: CYTARABINE
     Dosage: UNK
     Route: 024
     Dates: start: 20180509
  67. CYTARABINE. [Suspect]
     Active Substance: CYTARABINE
     Dosage: UNK
     Route: 024
     Dates: start: 20190620
  68. CYTARABINE. [Suspect]
     Active Substance: CYTARABINE
     Dosage: UNK
     Route: 024
     Dates: start: 20191126
  69. PREDNISOLONE. [Suspect]
     Active Substance: PREDNISOLONE
     Dosage: UNK
     Route: 024
     Dates: start: 20180524
  70. DENOSINE                           /00784201/ [Concomitant]
     Active Substance: GANCICLOVIR
     Indication: LARGE INTESTINAL ULCER
     Dosage: UNK
     Route: 065
  71. LYRICA [Suspect]
     Active Substance: PREGABALIN
     Indication: SOMATIC SYMPTOM DISORDER
  72. METHOTREXATE. [Suspect]
     Active Substance: METHOTREXATE
     Dosage: UNK
     Route: 024
     Dates: start: 20180621
  73. METHOTREXATE. [Suspect]
     Active Substance: METHOTREXATE
     Dosage: UNK
     Route: 024
     Dates: start: 20190620, end: 20190622
  74. CYTARABINE. [Suspect]
     Active Substance: CYTARABINE
     Dosage: UNK
     Route: 024
     Dates: start: 20180502
  75. CYTARABINE. [Suspect]
     Active Substance: CYTARABINE
     Dosage: UNK
     Route: 024
     Dates: start: 20180705
  76. CYTARABINE. [Suspect]
     Active Substance: CYTARABINE
     Dosage: UNK
     Route: 024
     Dates: start: 20190618
  77. CYTARABINE. [Suspect]
     Active Substance: CYTARABINE
     Dosage: UNK
     Route: 024
     Dates: start: 20191203
  78. PREDNISOLONE. [Suspect]
     Active Substance: PREDNISOLONE
     Dosage: UNK
     Route: 024
     Dates: start: 20191118
  79. BAYASPIRIN [Concomitant]
     Active Substance: ASPIRIN
     Indication: PROPHYLAXIS
     Dosage: UNK
     Route: 065
     Dates: start: 20180524

REACTIONS (14)
  - Hepatic function abnormal [Recovered/Resolved]
  - Herpes zoster [Recovered/Resolved]
  - Central nervous system leukaemia [Recovering/Resolving]
  - Urinary retention [Not Recovered/Not Resolved]
  - Eczema asteatotic [Recovered/Resolved]
  - Anaemia [Not Recovered/Not Resolved]
  - Headache [Recovered/Resolved]
  - Listeraemia [Recovered/Resolved]
  - Somatic symptom disorder [Recovered/Resolved]
  - Gamma-glutamyltransferase increased [Recovered/Resolved]
  - Pneumonia pneumococcal [Recovered/Resolved]
  - Large intestinal ulcer [Recovering/Resolving]
  - Neutrophil count decreased [Recovered/Resolved]
  - Platelet count decreased [Recovered/Resolved]

NARRATIVE: CASE EVENT DATE: 20180209
